FAERS Safety Report 22123715 (Version 1)
Quarter: 2023Q1

REPORT INFORMATION
  Report Type: Report from Study
  Country: TH (occurrence: None)
  Receive Date: 20230322
  Receipt Date: 20230322
  Transmission Date: 20230418
  Serious: Yes (Death, Hospitalization)
  Sender: FDA-Public Use
  Company Number: TH-ROCHE-3313472

PATIENT
  Age: 84 Year
  Sex: Female

DRUGS (21)
  1. ATEZOLIZUMAB [Suspect]
     Active Substance: ATEZOLIZUMAB
     Indication: Non-small cell lung cancer metastatic
     Dosage: ON 11/APR/2022 AT 3:20 PM, SHE RECEIVED THE MOST RECENT DOSE OF ATEZOLIZUMAB (1200 MG) PRIOR TO AE A
     Route: 041
     Dates: start: 20210802
  2. FENTANYL [Concomitant]
     Active Substance: FENTANYL
     Indication: Cancer pain
     Route: 062
     Dates: start: 20210601
  3. MORPHINE [Concomitant]
     Active Substance: MORPHINE
     Indication: Cancer pain
     Route: 048
     Dates: start: 20210121
  4. SENNA [Concomitant]
     Active Substance: SENNA LEAF\SENNOSIDES\SENNOSIDES A AND B
     Indication: Constipation
     Route: 048
     Dates: start: 20210121
  5. MILK OF MAGNESIA [Concomitant]
     Active Substance: MAGNESIUM HYDROXIDE
     Indication: Constipation
     Route: 048
     Dates: start: 20210217
  6. GABAPENTIN [Concomitant]
     Active Substance: GABAPENTIN
     Indication: Cancer pain
     Route: 048
     Dates: start: 20210217
  7. SIMVASTATIN [Concomitant]
     Active Substance: SIMVASTATIN
     Indication: Dyslipidaemia
     Route: 048
     Dates: start: 20110427
  8. OMEPRAZOLE [Concomitant]
     Active Substance: OMEPRAZOLE
     Route: 048
     Dates: start: 20220518
  9. BRIMONIDINE TARTRATE [Concomitant]
     Active Substance: BRIMONIDINE TARTRATE
     Indication: Glaucoma
     Route: 047
     Dates: start: 20220501
  10. DORZOLAMIDE HYDROCHLORIDE\TIMOLOL MALEATE [Concomitant]
     Active Substance: DORZOLAMIDE HYDROCHLORIDE\TIMOLOL MALEATE
     Indication: Glaucoma
     Route: 047
     Dates: start: 20220501
  11. LATANOPROST [Concomitant]
     Active Substance: LATANOPROST
     Indication: Glaucoma
     Route: 047
     Dates: start: 20220501
  12. PREDNISOLONE [Concomitant]
     Active Substance: PREDNISOLONE
     Indication: Glaucoma
     Route: 047
     Dates: start: 20220501
  13. MANIDIPINE [Concomitant]
     Active Substance: MANIDIPINE
     Indication: Hypertension
     Route: 048
     Dates: start: 20220510
  14. TRIAMCINOLONE [Concomitant]
     Active Substance: TRIAMCINOLONE
     Indication: Mouth ulceration
     Dosage: 1 OTHER
     Route: 061
     Dates: start: 20200921
  15. ACETAMINOPHEN [Concomitant]
     Active Substance: ACETAMINOPHEN
     Indication: Cancer pain
     Route: 048
     Dates: start: 20210601
  16. ACETAMINOPHEN [Concomitant]
     Active Substance: ACETAMINOPHEN
     Indication: Urinary tract infection
  17. CETIRIZINE [Concomitant]
     Active Substance: CETIRIZINE HYDROCHLORIDE
     Route: 048
     Dates: start: 20190902
  18. DIMENHYDRINATE [Concomitant]
     Active Substance: DIMENHYDRINATE
     Indication: Nausea
     Route: 048
     Dates: start: 20211014
  19. HYPROMELLOSES [Concomitant]
     Active Substance: HYPROMELLOSES
     Dosage: 1 OTHER
     Route: 047
     Dates: start: 20211014
  20. GABAPENTIN [Concomitant]
     Active Substance: GABAPENTIN
     Indication: Cancer pain
     Route: 048
     Dates: start: 20210422
  21. LORAZEPAM [Concomitant]
     Active Substance: LORAZEPAM
     Indication: Insomnia
     Route: 048
     Dates: start: 20210616

REACTIONS (1)
  - Pyelonephritis acute [Fatal]

NARRATIVE: CASE EVENT DATE: 20220615
